FAERS Safety Report 19268515 (Version 1)
Quarter: 2021Q2

REPORT INFORMATION
  Report Type: Spontaneous
  Country: JP (occurrence: JP)
  Receive Date: 20210518
  Receipt Date: 20210518
  Transmission Date: 20210717
  Serious: Yes (Death, Hospitalization, Other)
  Sender: FDA-Public Use
  Company Number: JP-LUPIN PHARMACEUTICALS INC.-2021-07071

PATIENT
  Age: 79 Year
  Sex: Male

DRUGS (19)
  1. VORICONAZOLE. [Suspect]
     Active Substance: VORICONAZOLE
     Indication: BRONCHOPULMONARY ASPERGILLOSIS
     Dosage: UNK
     Route: 065
  2. METHYLPREDNISOLONE. [Suspect]
     Active Substance: METHYLPREDNISOLONE
     Dosage: 70 MILLIGRAM, QD
     Route: 065
  3. AMPHOTERICIN B. [Suspect]
     Active Substance: AMPHOTERICIN B
     Indication: BRONCHOPULMONARY ASPERGILLOSIS
     Dosage: UNK
     Route: 065
  4. METHYLPREDNISOLONE. [Suspect]
     Active Substance: METHYLPREDNISOLONE
     Indication: COVID-19
     Dosage: 1000 MILLIGRAM, QD
     Route: 065
  5. MICAFUNGIN. [Suspect]
     Active Substance: MICAFUNGIN SODIUM
     Indication: BRONCHOPULMONARY ASPERGILLOSIS
     Dosage: UNK
     Route: 065
  6. CICLESONIDE [Suspect]
     Active Substance: CICLESONIDE
     Indication: COVID-19
     Dosage: 200 MICROGRAM
  7. METHYLPREDNISOLONE. [Suspect]
     Active Substance: METHYLPREDNISOLONE
     Dosage: 40 MILLIGRAM, QD
     Route: 065
  8. HEPARIN [Suspect]
     Active Substance: HEPARIN SODIUM
     Indication: COVID-19
     Dosage: UNK
     Route: 065
  9. METHOTREXATE. [Concomitant]
     Active Substance: METHOTREXATE
     Indication: POLYMYALGIA RHEUMATICA
     Dosage: 10 MILLIGRAM
     Route: 065
  10. REMDESIVIR. [Suspect]
     Active Substance: REMDESIVIR
     Indication: COVID-19
     Dosage: 200 MILLIGRAM, QD
     Route: 065
  11. THROMBOMODULIN ALFA RECOMBINANT [Suspect]
     Active Substance: THROMBOMODULIN ALFA
     Indication: BRONCHOPULMONARY ASPERGILLOSIS
     Dosage: STARTED ON 24TH DAY
     Route: 065
  12. METHYLPREDNISOLONE. [Suspect]
     Active Substance: METHYLPREDNISOLONE
     Dosage: 60 MILLIGRAM, QD
     Route: 065
  13. IVERMECTIN. [Suspect]
     Active Substance: IVERMECTIN
     Indication: COVID-19
     Dosage: 9 MILLIGRAM, QD
     Route: 048
  14. BETAMETHASONE. [Suspect]
     Active Substance: BETAMETHASONE
     Indication: POLYMYALGIA RHEUMATICA
     Dosage: 0.5 MILLIGRAM, QD
     Route: 065
  15. DORIPENEM. [Suspect]
     Active Substance: DORIPENEM
     Indication: COVID-19
     Dosage: UNK
     Route: 065
  16. PREDNISOLONE. [Suspect]
     Active Substance: PREDNISOLONE
     Indication: POLYMYALGIA RHEUMATICA
     Dosage: 2 MILLIGRAM, QD
     Route: 065
  17. MEROPENEM. [Suspect]
     Active Substance: MEROPENEM
     Indication: COVID-19
     Dosage: 3 GRAM, QD
     Route: 065
  18. DEXAMETHASONE. [Suspect]
     Active Substance: DEXAMETHASONE
     Indication: COVID-19
     Dosage: 6 MILLIGRAM, QD
     Route: 065
  19. PAZUFLOXACIN [Suspect]
     Active Substance: PAZUFLOXACIN
     Indication: COVID-19
     Dosage: UNK
     Route: 065

REACTIONS (6)
  - Bronchopulmonary aspergillosis [Fatal]
  - Drug ineffective [Fatal]
  - Off label use [Fatal]
  - Respiratory failure [Fatal]
  - Multiple organ dysfunction syndrome [Fatal]
  - Renal failure [Fatal]
